FAERS Safety Report 10560682 (Version 2)
Quarter: 2014Q4

REPORT INFORMATION
  Report Type: Spontaneous
  Country: BR (occurrence: BR)
  Receive Date: 20141103
  Receipt Date: 20141111
  Transmission Date: 20150529
  Serious: Yes (Other)
  Sender: FDA-Public Use
  Company Number: BR-PFIZER INC-2014300460

PATIENT
  Age: 69 Year
  Sex: Female
  Weight: 66 kg

DRUGS (4)
  1. ALPRAZOLAM. [Concomitant]
     Active Substance: ALPRAZOLAM
     Indication: NERVOUSNESS
     Dosage: 1 TABLET, DAILY
     Dates: start: 201409
  2. AMOXICILLIN, CLAVULANIC ACID [Concomitant]
     Active Substance: AMOXICILLIN\CLAVULANIC ACID
     Dosage: UNK
     Dates: start: 20141101
  3. LYRICA [Suspect]
     Active Substance: PREGABALIN
     Indication: BURSITIS
     Dosage: 75 MG (1 CAPUSLE), 1X/DAY
     Route: 048
     Dates: start: 2014, end: 2014
  4. LYRICA [Suspect]
     Active Substance: PREGABALIN
     Dosage: UNK
     Dates: start: 2014

REACTIONS (8)
  - Therapeutic response unexpected [Unknown]
  - Blindness [Recovering/Resolving]
  - Drug ineffective for unapproved indication [Unknown]
  - Pneumonia [Unknown]
  - Tendon disorder [Unknown]
  - Optic ischaemic neuropathy [Unknown]
  - Eye operation complication [Unknown]
  - Nausea [Not Recovered/Not Resolved]

NARRATIVE: CASE EVENT DATE: 2014
